FAERS Safety Report 7983168-X (Version None)
Quarter: 2011Q4

REPORT INFORMATION
  Report Type: 
  Country: None (occurrence: None)
  Receive Date: 20111123
  Receipt Date: 20110908
  Transmission Date: 20120403
  Serious: No
  Sender: FDA-Public Use
  Company Number: 337613

PATIENT
  Sex: Female

DRUGS (2)
  1. THIAZIDE (HYDROCHLOROTHIAZIDE) [Concomitant]
  2. VICTOZA [Suspect]
     Indication: TYPE 2 DIABETES MELLITUS
     Dosage: , SUBCUTANEOUS
     Route: 058

REACTIONS (1)
  - LIPASE INCREASED [None]
